FAERS Safety Report 15719850 (Version 3)
Quarter: 2019Q1

REPORT INFORMATION
  Report Type: Spontaneous
  Country: US (occurrence: US)
  Receive Date: 20181213
  Receipt Date: 20190315
  Transmission Date: 20190417
  Serious: Yes (Other)
  Sender: FDA-Public Use
  Company Number: US-PFIZER INC-2018512977

PATIENT
  Age: 72 Year
  Sex: Female
  Weight: 53.98 kg

DRUGS (1)
  1. IBRANCE [Suspect]
     Active Substance: PALBOCICLIB
     Indication: BREAST CANCER
     Dosage: 125 MG, 1X/DAY
     Route: 048
     Dates: start: 201812

REACTIONS (3)
  - Bipolar disorder [Unknown]
  - Cellulitis [Unknown]
  - Peripheral swelling [Unknown]
